FAERS Safety Report 5234768-1 (Version None)
Quarter: 2007Q1

REPORT INFORMATION
  Report Type: 
  Country: None (occurrence: None)
  Receive Date: 20070209
  Receipt Date: 20070130
  Transmission Date: 20070707
  Serious: Yes (Other)
  Sender: FDA-Public Use
  Company Number: BR-PFIZER INC-2006112158

PATIENT
  Sex: Female
  Weight: 29 kg

DRUGS (10)
  1. FRONTAL [Suspect]
     Indication: ANXIETY
     Route: 048
  2. FRONTAL [Suspect]
     Indication: INSOMNIA
  3. AMLODIPINE [Concomitant]
     Dosage: DAILY DOSE:5MG
     Route: 048
  4. LAXATIVES [Concomitant]
     Route: 065
  5. VITAMINS [Concomitant]
     Route: 065
  6. ZINC [Concomitant]
     Dosage: DAILY DOSE:22MG
     Route: 048
  7. ALL OTHER THERAPEUTIC PRODUCTS [Concomitant]
     Route: 048
  8. CAPTOPRIL [Concomitant]
     Route: 065
     Dates: start: 20061201, end: 20070101
  9. LOSARTAN POSTASSIUM [Concomitant]
     Route: 065
  10. NEULEPTIL [Concomitant]
     Route: 048

REACTIONS (15)
  - ANOREXIA [None]
  - ASTHENIA [None]
  - BLOOD PRESSURE DECREASED [None]
  - COUGH [None]
  - DYSPNOEA [None]
  - DYSSTASIA [None]
  - FATIGUE [None]
  - GAIT DISTURBANCE [None]
  - INSOMNIA [None]
  - NASOPHARYNGITIS [None]
  - PAIN IN EXTREMITY [None]
  - SEDATION [None]
  - SOMNOLENCE [None]
  - TREMOR [None]
  - WEIGHT INCREASED [None]
